FAERS Safety Report 19067291 (Version 2)
Quarter: 2021Q2

REPORT INFORMATION
  Report Type: Spontaneous
  Country: DE (occurrence: DE)
  Receive Date: 20210329
  Receipt Date: 20210611
  Transmission Date: 20210717
  Serious: Yes (Hospitalization, Other)
  Sender: FDA-Public Use
  Company Number: DE-SA-2021SA102941

PATIENT
  Sex: Female

DRUGS (9)
  1. PANTOPRAZOLE SODIUM. [Concomitant]
     Active Substance: PANTOPRAZOLE SODIUM
     Dosage: 20 MG, QD
     Route: 048
  2. ATORVASTATIN [Concomitant]
     Active Substance: ATORVASTATIN
     Dosage: 20 MG, BID
  3. LERCANIDIPINE HCL [Concomitant]
     Active Substance: LERCANIDIPINE HYDROCHLORIDE
     Indication: HYPERTENSION
     Dosage: 10 MG, BID
     Route: 048
  4. BECLOMETHASONE [BECLOMETASONE] [Concomitant]
     Active Substance: BECLOMETHASONE
     Indication: NASAL POLYPS
     Dosage: 2 X 2
     Route: 045
  5. ATORVASTATIN [Concomitant]
     Active Substance: ATORVASTATIN
     Indication: PROPHYLAXIS
     Dosage: 40 MG/DL
  6. ATORVASTATIN [Concomitant]
     Active Substance: ATORVASTATIN
     Dosage: 80 MG, QD
  7. DUPIXENT [Suspect]
     Active Substance: DUPILUMAB
     Dosage: 300 MG
     Dates: start: 20201203
  8. CANDESARTAN CILEXETIL. [Concomitant]
     Active Substance: CANDESARTAN CILEXETIL
     Indication: HYPERTENSION
     Dosage: 16 MG, QD
     Route: 048
  9. CLOPIDOGREL [Concomitant]
     Active Substance: CLOPIDOGREL BISULFATE
     Indication: PROPHYLAXIS
     Dosage: 75 MG/DL, QD

REACTIONS (44)
  - Cerebrovascular accident [Unknown]
  - Hemiparesis [Recovered/Resolved]
  - Dysphagia [Unknown]
  - Headache [Recovered/Resolved]
  - Tremor [Recovered/Resolved]
  - Injection site injury [Unknown]
  - Hemiparesis [Recovered/Resolved]
  - Ischaemic stroke [Recovered/Resolved]
  - Carotid artery stenosis [Unknown]
  - Hypoaesthesia [Recovered/Resolved]
  - Visual impairment [Unknown]
  - Low density lipoprotein increased [Unknown]
  - Arthralgia [Unknown]
  - Vertigo [Unknown]
  - Hypertension [Unknown]
  - Sinusitis [Unknown]
  - Impaired driving ability [Unknown]
  - Condition aggravated [Recovered/Resolved]
  - Blood glucose increased [Unknown]
  - Dysarthria [Recovering/Resolving]
  - Agitation [Recovered/Resolved]
  - Dysarthria [Recovered/Resolved]
  - Dysarthria [Recovered/Resolved]
  - Seizure [Unknown]
  - Basal ganglia infarction [Unknown]
  - Arteriosclerosis [Unknown]
  - Anxiety [Recovering/Resolving]
  - Muscle spasms [Recovered/Resolved]
  - Blood cholesterol increased [Unknown]
  - Abdominal pain [Unknown]
  - Airway complication of anaesthesia [Unknown]
  - Asthenia [Recovering/Resolving]
  - Muscle spasms [Recovering/Resolving]
  - Chest discomfort [Recovering/Resolving]
  - Dyspnoea [Recovering/Resolving]
  - Facial paresis [Recovering/Resolving]
  - Heart rate increased [Recovered/Resolved]
  - Blood pressure increased [Recovered/Resolved]
  - Vein wall hypertrophy [Unknown]
  - Eczema [Unknown]
  - Eye pruritus [Unknown]
  - Hyperlipidaemia [Unknown]
  - Panic attack [Unknown]
  - Anxiety [Unknown]

NARRATIVE: CASE EVENT DATE: 20201231
